FAERS Safety Report 7189186-6 (Version None)
Quarter: 2010Q4

REPORT INFORMATION
  Report Type: 
  Country: None (occurrence: None)
  Receive Date: 20101222
  Receipt Date: 20100804
  Transmission Date: 20110411
  Serious: No
  Sender: FDA-Public Use
  Company Number: US-AMGEN-KDL425187

PATIENT

DRUGS (5)
  1. ENBREL [Suspect]
     Indication: RHEUMATOID ARTHRITIS
     Dosage: 50 MG, QWK
     Route: 058
     Dates: start: 20100703
  2. METHOTREXATE [Concomitant]
     Dosage: 25 MG, QWK
     Route: 058
  3. HYDROXYCHLOROQUINE [Concomitant]
     Dosage: 200 MG, UNK
  4. SULFASALAZINE [Concomitant]
     Dosage: 500 MG, BID
  5. HYDROXYCHLOROQUINE [Concomitant]
     Dosage: 400 MG, QD

REACTIONS (2)
  - DRUG INEFFECTIVE [None]
  - RHEUMATOID ARTHRITIS [None]
